FAERS Safety Report 7832217-8 (Version None)
Quarter: 2011Q4

REPORT INFORMATION
  Report Type: 
  Country: None (occurrence: None)
  Receive Date: 20111022
  Receipt Date: 20101110
  Transmission Date: 20120403
  Serious: No
  Sender: FDA-Public Use
  Company Number: US-BAYER-201040939NA

PATIENT
  Sex: Female

DRUGS (4)
  1. COZAAR [Concomitant]
  2. CIPROFLOXACIN [Suspect]
     Dosage: 500 MG, UNK
     Dates: start: 20101101, end: 20101101
  3. ATENOLOL [Concomitant]
  4. CIPROFLOXACIN [Suspect]
     Dosage: 500 MG, ONCE
     Route: 042
     Dates: start: 20100101

REACTIONS (2)
  - OROPHARYNGEAL PAIN [None]
  - COUGH [None]
